FAERS Safety Report 7689299-6 (Version None)
Quarter: 2011Q3

REPORT INFORMATION
  Report Type: 
  Country: None (occurrence: None)
  Receive Date: 20110811
  Receipt Date: 20110728
  Transmission Date: 20111222
  Serious: Yes (Life-Threatening, Hospitalization, Other)
  Sender: FDA-Public Use
  Company Number: 2009S1004925

PATIENT
  Age: 53 Year
  Sex: Female

DRUGS (7)
  1. KLONOPIN [Concomitant]
  2. CATAPRES-TTS-1 [Concomitant]
  3. PROMETHAZINE [Concomitant]
  4. DIOVAN [Concomitant]
  5. PHOSPHOSODA FLAVOR NOT SPECIFIED [Suspect]
     Indication: COLONOSCOPY
     Dosage: 90 ML; TOTAL; PO
     Route: 048
     Dates: start: 20060620, end: 20060620
  6. DETROL [Concomitant]
  7. PROZAC [Concomitant]

REACTIONS (1)
  - RENAL FAILURE ACUTE [None]
